FAERS Safety Report 18855875 (Version 1)
Quarter: 2021Q1

REPORT INFORMATION
  Report Type: Spontaneous
  Country: IE (occurrence: IE)
  Receive Date: 20210206
  Receipt Date: 20210206
  Transmission Date: 20210420
  Serious: Yes (Life-Threatening, Other)
  Sender: FDA-Public Use
  Company Number: IE-ACCORD-216648

PATIENT
  Age: 19 Year
  Sex: Male

DRUGS (6)
  1. CHLORPHENAMINE/CHLORPHENAMINE MALEATE/CHLORPHENAMINE RESINATE/CHLORPHENAMINE TANNATE [Suspect]
     Active Substance: CHLORPHENIRAMINE
     Indication: VOMITING
  2. CYCLIZINE [Suspect]
     Active Substance: CYCLIZINE
     Indication: VOMITING
  3. ONDANSETRON [Suspect]
     Active Substance: ONDANSETRON
     Indication: VOMITING
  4. METOCLOPRAMIDE. [Suspect]
     Active Substance: METOCLOPRAMIDE
     Indication: VOMITING
  5. PROCHLORPERAZINE. [Suspect]
     Active Substance: PROCHLORPERAZINE
     Indication: VOMITING
  6. HALOPERIDOL. [Suspect]
     Active Substance: HALOPERIDOL
     Indication: VOMITING

REACTIONS (3)
  - Dystonia [Recovered/Resolved]
  - Type IV hypersensitivity reaction [Recovered/Resolved]
  - Symptom masked [Recovered/Resolved]
